FAERS Safety Report 22317881 (Version 4)
Quarter: 2023Q2

REPORT INFORMATION
  Report Type: Spontaneous
  Country: US (occurrence: US)
  Receive Date: 20230515
  Receipt Date: 20230602
  Transmission Date: 20230721
  Serious: No
  Sender: FDA-Public Use
  Company Number: US-LUPIN PHARMACEUTICALS INC.-2023-03583

PATIENT

DRUGS (2)
  1. ALBUTEROL SULFATE [Suspect]
     Active Substance: ALBUTEROL SULFATE
     Indication: Asthma
     Dosage: UNK, 2 PUFFS AS NEEDED
     Dates: start: 20230424
  2. DUPIXENT [Concomitant]
     Active Substance: DUPILUMAB
     Indication: Allergic sinusitis
     Dosage: UNK, ONCE EVERY 2 WEEKS
     Route: 065

REACTIONS (6)
  - Dyspnoea [Unknown]
  - Wheezing [Unknown]
  - Hypertension [Unknown]
  - Drug dose omission by device [Unknown]
  - Device delivery system issue [Unknown]
  - Circumstance or information capable of leading to device use error [Unknown]

NARRATIVE: CASE EVENT DATE: 20230424
